FAERS Safety Report 22299169 (Version 10)
Quarter: 2023Q4

REPORT INFORMATION
  Report Type: Spontaneous
  Country: US (occurrence: US)
  Receive Date: 20230509
  Receipt Date: 20231120
  Transmission Date: 20240110
  Serious: Yes (Other)
  Sender: FDA-Public Use
  Company Number: US-PFIZER INC-202300182764

PATIENT
  Age: 57 Year
  Sex: Female
  Weight: 70.295 kg

DRUGS (7)
  1. PRISTIQ EXTENDED-RELEASE [Suspect]
     Active Substance: DESVENLAFAXINE SUCCINATE
     Indication: Major depression
     Dosage: 25 MG
  2. PRISTIQ EXTENDED-RELEASE [Suspect]
     Active Substance: DESVENLAFAXINE SUCCINATE
     Indication: Post-traumatic stress disorder
     Dosage: 75 MG, DAILY (1 TABLET DAILY (WITH 25 MG TO EQUAL 75 MG))
     Route: 048
     Dates: start: 2020, end: 202303
  3. PRISTIQ EXTENDED-RELEASE [Suspect]
     Active Substance: DESVENLAFAXINE SUCCINATE
     Dosage: 100 MG, DAILY
     Dates: start: 2023, end: 2023
  4. PRISTIQ EXTENDED-RELEASE [Suspect]
     Active Substance: DESVENLAFAXINE SUCCINATE
     Dosage: 75 MG, DAILY (ONE 25 MG TABLE ALONG WITH 50 MG TO EQUAL 75 MG DAILY)
     Route: 048
     Dates: start: 2023
  5. KLONOPIN [Concomitant]
     Active Substance: CLONAZEPAM
     Dosage: UNK
     Dates: start: 2015
  6. AMBIEN CR [Concomitant]
     Active Substance: ZOLPIDEM TARTRATE
     Dosage: UNK
     Dates: start: 2015
  7. TIZANIDINE [Concomitant]
     Active Substance: TIZANIDINE
     Dosage: UNK
     Dates: start: 2015

REACTIONS (12)
  - Knee arthroplasty [Unknown]
  - Product dispensing error [Unknown]
  - Malaise [Unknown]
  - Mood altered [Not Recovered/Not Resolved]
  - Anger [Recovered/Resolved]
  - Cerebral disorder [Not Recovered/Not Resolved]
  - Feeding disorder [Unknown]
  - Insomnia [Unknown]
  - Headache [Not Recovered/Not Resolved]
  - Feeling abnormal [Not Recovered/Not Resolved]
  - Anxiety [Unknown]
  - Weight decreased [Unknown]

NARRATIVE: CASE EVENT DATE: 20230315
